FAERS Safety Report 25329293 (Version 2)
Quarter: 2025Q2

REPORT INFORMATION
  Report Type: Spontaneous
  Country: CO (occurrence: CO)
  Receive Date: 20250519
  Receipt Date: 20250528
  Transmission Date: 20250717
  Serious: Yes (Other)
  Sender: NOVO NORDISK
  Company Number: CO-NOVOPROD-1418664

PATIENT
  Age: 41 Year
  Sex: Female

DRUGS (2)
  1. SAXENDA [Suspect]
     Active Substance: LIRAGLUTIDE
     Indication: Obesity
     Dosage: 3 MG, QD
     Route: 058
     Dates: start: 20240501, end: 20241201
  2. TOPIRAMATE [Concomitant]
     Active Substance: TOPIRAMATE
     Indication: Initial insomnia
     Dosage: 25 MG, QD
     Route: 048
     Dates: start: 20240601, end: 20240801

REACTIONS (3)
  - Haematemesis [Not Recovered/Not Resolved]
  - Hiatus hernia [Not Recovered/Not Resolved]
  - Gastritis [Not Recovered/Not Resolved]

NARRATIVE: CASE EVENT DATE: 20240101
